FAERS Safety Report 7434036-3 (Version None)
Quarter: 2011Q2

REPORT INFORMATION
  Report Type: 
  Country: None (occurrence: None)
  Receive Date: 20110425
  Receipt Date: 20110325
  Transmission Date: 20111010
  Serious: Yes (Other)
  Sender: FDA-Public Use
  Company Number: US-BAYER-200937046NA

PATIENT
  Age: 26 Year
  Sex: Female
  Weight: 72.562 kg

DRUGS (9)
  1. PREDNISONE [Concomitant]
     Indication: SINUSITIS
     Dosage: UNK
  2. IBUPROFEN [Concomitant]
     Dosage: 600 MG, TID
     Route: 048
     Dates: start: 20050527
  3. CLARITHROMYCIN [Concomitant]
     Dosage: 500 MG, BID
     Route: 048
     Dates: start: 20050530
  4. SPRINTEC [Concomitant]
     Dosage: UNK
     Route: 048
     Dates: start: 20050112
  5. YASMIN [Suspect]
     Indication: PRODUCT USED FOR UNKNOWN INDICATION
     Dosage: UNK
     Route: 048
     Dates: start: 20050101
  6. YAZ [Suspect]
     Indication: PRODUCT USED FOR UNKNOWN INDICATION
     Dosage: UNK
     Route: 048
     Dates: start: 20050101
  7. FLONASE [Concomitant]
     Dosage: UNK UNK, BID
     Route: 045
     Dates: start: 20050630
  8. TRAMADOL HCL [Concomitant]
     Dosage: 50 MG, PRN
     Route: 048
     Dates: start: 20050526
  9. MECLIZINE [Concomitant]
     Indication: DIZZINESS
     Dosage: 25 MG, TID
     Route: 048
     Dates: start: 20050630

REACTIONS (14)
  - ANXIETY [None]
  - DEPRESSION [None]
  - EMOTIONAL DISTRESS [None]
  - CEREBRAL INFARCTION [None]
  - CEREBRAL THROMBOSIS [None]
  - INJURY [None]
  - PHOTOPHOBIA [None]
  - AMNESIA [None]
  - PAIN [None]
  - MENTAL DISORDER [None]
  - COMPLEX PARTIAL SEIZURES [None]
  - SUBDURAL HAEMORRHAGE [None]
  - PANIC ATTACK [None]
  - HEADACHE [None]
